FAERS Safety Report 8919858 (Version 3)
Quarter: 2013Q2

REPORT INFORMATION
  Report Type: Spontaneous
  Country: US (occurrence: US)
  Receive Date: 20121121
  Receipt Date: 20130620
  Transmission Date: 20140414
  Serious: Yes (Hospitalization)
  Sender: FDA-Public Use
  Company Number: US-BAYER-2012-120403

PATIENT
  Age: 30 Year
  Sex: Female
  Weight: 91 kg

DRUGS (12)
  1. BEYAZ [Suspect]
     Indication: ENDOMETRIOSIS
     Dosage: UNK
     Dates: start: 20101202, end: 20101223
  2. BEYAZ [Suspect]
     Indication: PREMENSTRUAL SYNDROME
     Dosage: UNK
     Dates: start: 20101203, end: 20101231
  3. BEYAZ [Suspect]
     Indication: MENSTRUATION IRREGULAR
  4. BEYAZ [Suspect]
     Indication: PAIN
  5. BEYAZ [Suspect]
     Indication: PELVIC PAIN
  6. ALEVE [Concomitant]
     Indication: HEADACHE
     Dosage: 9 [PER] WEEK
     Dates: start: 20101020
  7. EXCEDRIN MIGRAINE [Concomitant]
     Indication: SINUS HEADACHE
     Dosage: 2 [PER] DAY
     Dates: start: 20101020
  8. PROMETHAZINE [Concomitant]
     Dosage: 25 MG, UNK
  9. OMEPRAZOLE [Concomitant]
     Dosage: 40 MG, UNK
  10. AMOXICILLIN [Concomitant]
  11. SUDAFED [Concomitant]
  12. TRAMADOL [Concomitant]

REACTIONS (15)
  - Pulmonary embolism [None]
  - Pulmonary infarction [None]
  - Pain [None]
  - Fear of disease [None]
  - Emotional distress [None]
  - Injury [None]
  - Pain [None]
  - Stress [None]
  - Anxiety [None]
  - Mental disorder [None]
  - Flank pain [None]
  - Chest pain [None]
  - Dyspnoea [None]
  - Syncope [None]
  - Off label use [None]
